FAERS Safety Report 25811482 (Version 1)
Quarter: 2025Q3

REPORT INFORMATION
  Report Type: Spontaneous
  Country: US (occurrence: US)
  Receive Date: 20250917
  Receipt Date: 20250917
  Transmission Date: 20251020
  Serious: Yes (Hospitalization, Other)
  Sender: ZYDUS PHARM
  Company Number: US-CADILA HEALTHCARE LIMITED-US-ZYDUS-128444

PATIENT

DRUGS (4)
  1. ARSENIC TRIOXIDE [Suspect]
     Active Substance: ARSENIC TRIOXIDE
     Indication: Acute promyelocytic leukaemia
     Route: 065
  2. ARSENIC TRIOXIDE [Suspect]
     Active Substance: ARSENIC TRIOXIDE
     Route: 065
  3. TRETINOIN [Suspect]
     Active Substance: TRETINOIN
     Indication: Acute promyelocytic leukaemia
     Route: 065
  4. TRETINOIN [Suspect]
     Active Substance: TRETINOIN
     Route: 065

REACTIONS (5)
  - Intracranial pressure increased [Unknown]
  - Papilloedema [Unknown]
  - Differentiation syndrome [Unknown]
  - Acute respiratory distress syndrome [Unknown]
  - Electrocardiogram QT prolonged [Unknown]
